FAERS Safety Report 19849412 (Version 1)
Quarter: 2021Q3

REPORT INFORMATION
  Report Type: Spontaneous
  Country: BR (occurrence: BR)
  Receive Date: 20210918
  Receipt Date: 20210918
  Transmission Date: 20211014
  Serious: Yes (Other)
  Sender: FDA-Public Use
  Company Number: BR-SUN PHARMACEUTICAL INDUSTRIES LTD-2021R1-311112

PATIENT
  Age: 54 Year
  Sex: Female

DRUGS (2)
  1. LEVULAN KERASTICK [Suspect]
     Active Substance: AMINOLEVULINIC ACID HYDROCHLORIDE
     Indication: ACTINIC KERATOSIS
     Dosage: UNK
     Route: 065
  2. DYSPORT [Suspect]
     Active Substance: ABOBOTULINUMTOXINA
     Indication: ACTINIC KERATOSIS
     Dosage: UNK
     Route: 065

REACTIONS (4)
  - Eyelid ptosis [Unknown]
  - Wrong technique in product usage process [Unknown]
  - Swelling [Unknown]
  - Speech disorder [Unknown]
